FAERS Safety Report 11819182 (Version 1)
Quarter: 2015Q4

REPORT INFORMATION
  Report Type: Spontaneous
  Country: US (occurrence: None)
  Receive Date: 20151209
  Receipt Date: 20151209
  Transmission Date: 20160305
  Serious: Yes (Hospitalization)
  Sender: FDA-Public Use
  Company Number: None

PATIENT
  Age: 71 Year
  Sex: Male
  Weight: 88.4 kg

DRUGS (10)
  1. CALCIUM CARBONATE. [Concomitant]
     Active Substance: CALCIUM CARBONATE
  2. FLAXSEED [Concomitant]
     Active Substance: FLAX SEED
  3. NIACIN. [Concomitant]
     Active Substance: NIACIN
  4. FISH OIL [Concomitant]
     Active Substance: FISH OIL
  5. WARFARIN [Suspect]
     Active Substance: WARFARIN
     Indication: ATRIAL FIBRILLATION
     Dosage: 2MG Q MWF PO CHRONIC
     Route: 048
  6. FERROUS SULFATE [Concomitant]
     Active Substance: FERROUS SULFATE\FERROUS SULFATE, DRIED
  7. MAG DX [Concomitant]
  8. LOPRESSOR [Concomitant]
     Active Substance: METOPROLOL TARTRATE
  9. MVI [Concomitant]
     Active Substance: VITAMINS
  10. LOVASTATIN. [Concomitant]
     Active Substance: LOVASTATIN

REACTIONS (6)
  - Haematochezia [None]
  - Coagulopathy [None]
  - International normalised ratio increased [None]
  - Intestinal mass [None]
  - Diverticulum [None]
  - Rectal obstruction [None]

NARRATIVE: CASE EVENT DATE: 20150303
